FAERS Safety Report 4334768-X (Version None)
Quarter: 2004Q2

REPORT INFORMATION
  Report Type: 
  Country: None (occurrence: None)
  Receive Date: 20040407
  Receipt Date: 20040407
  Transmission Date: 20050107
  Serious: No
  Sender: FDA-Public Use
  Company Number: None

PATIENT
  Sex: Male

DRUGS (1)
  1. XOPENEX [Suspect]
     Indication: ASTHMA
     Dosage: INHALATION NEBULIZER 0.63 MG Q 4 HRS PRN
     Route: 055

REACTIONS (2)
  - PSYCHOMOTOR HYPERACTIVITY [None]
  - URTICARIA [None]
